FAERS Safety Report 10498135 (Version 3)
Quarter: 2014Q4

REPORT INFORMATION
  Report Type: Spontaneous
  Country: US (occurrence: None)
  Receive Date: 20141002
  Receipt Date: 20141022
  Transmission Date: 20150528
  Serious: Yes (Disabling, Other)
  Sender: FDA-Public Use
  Company Number: 2552020

PATIENT
  Age: 39 Year
  Sex: Female
  Weight: 65.77 kg

DRUGS (2)
  1. ATENOLOL. [Concomitant]
     Active Substance: ATENOLOL
  2. CEFOTAXIME [Suspect]
     Active Substance: CEFOTAXIME\CEFOTAXIME SODIUM
     Indication: LYME DISEASE
     Dosage: 1 HOUR
     Dates: start: 20140217, end: 20140313

REACTIONS (16)
  - Uveitis [None]
  - Joint swelling [None]
  - Bone pain [None]
  - Abasia [None]
  - Joint injury [None]
  - Catheter site inflammation [None]
  - Pyrexia [None]
  - Inflammation [None]
  - Visual impairment [None]
  - Influenza like illness [None]
  - Flushing [None]
  - Catheter site pruritus [None]
  - Lower extremity mass [None]
  - Neck pain [None]
  - Arthralgia [None]
  - Rash generalised [None]

NARRATIVE: CASE EVENT DATE: 201403
